FAERS Safety Report 13628618 (Version 2)
Quarter: 2017Q2

REPORT INFORMATION
  Report Type: Spontaneous
  Country: SK (occurrence: SK)
  Receive Date: 20170608
  Receipt Date: 20170609
  Transmission Date: 20170830
  Serious: Yes (Hospitalization)
  Sender: FDA-Public Use
  Company Number: SK-PFIZER INC-2017250704

PATIENT
  Age: 48 Year
  Sex: Male
  Weight: 160 kg

DRUGS (5)
  1. FRAGMIN [Suspect]
     Active Substance: DALTEPARIN SODIUM
     Indication: THROMBOSIS PROPHYLAXIS
     Dosage: 5000 IU, 2X/DAY
     Route: 058
     Dates: start: 20170502, end: 20170506
  2. CIPROFLOXACIN. [Suspect]
     Active Substance: CIPROFLOXACIN
     Indication: ERYSIPELAS
     Dosage: 400 MG, 2X/DAY
     Route: 042
     Dates: start: 20170501, end: 20170507
  3. PROKAIN PENICILIN G [Suspect]
     Active Substance: PENICILLIN G PROCAINE
     Indication: ERYSIPELAS
     Dosage: 15000000 IU, 2X/DAY
     Route: 030
     Dates: start: 20170501, end: 20170507
  4. PERINDOPRIL + INDAPAMIDA GENERIS [Concomitant]
     Dosage: 8MG/2.5 MG LONG TERM 1X/DAY
     Route: 048
  5. METAMISTAD [Suspect]
     Active Substance: METAMIZOLE SODIUM
     Indication: PAIN IN EXTREMITY
     Dosage: 500 MG, 3X/DAY
     Route: 048
     Dates: start: 20170502, end: 20170506

REACTIONS (1)
  - Drug eruption [Recovered/Resolved]

NARRATIVE: CASE EVENT DATE: 20170508
